FAERS Safety Report 10203331 (Version 1)
Quarter: 2014Q2

REPORT INFORMATION
  Report Type: Report from Study
  Country: US (occurrence: US)
  Receive Date: 20140529
  Receipt Date: 20140529
  Transmission Date: 20141212
  Serious: Yes (Other)
  Sender: FDA-Public Use
  Company Number: PHEH2014US010668

PATIENT
  Sex: Female
  Weight: 61.22 kg

DRUGS (21)
  1. ZOMETA [Suspect]
     Indication: PLASMA CELL MYELOMA
     Dosage: 4 MG/5 ML, UNK
     Route: 042
  2. KLONOPIN [Concomitant]
     Dosage: 1 MG, UNK
  3. CENTRUM SILVER [Concomitant]
     Dosage: UNK UKN, UNK
  4. CALTRATE +D [Concomitant]
     Dosage: 600-800 UKN, UNK
  5. SINGULAIR [Concomitant]
     Dosage: 4 MG, UNK
  6. PANTOPRAZOLE [Concomitant]
     Dosage: 20 MG, UNK
  7. AMBIEN [Concomitant]
     Dosage: 5 MG, UNK
  8. LASIX [Concomitant]
     Dosage: 20 MG, UNK
  9. PREMARIN VAGINAL CREAM [Concomitant]
     Dosage: UNK UKN, UNK
  10. DEXAMETHASONE [Concomitant]
     Dosage: 1 MG, UNK
  11. ZYRTEC [Concomitant]
     Dosage: 5 MG, UNK
  12. ASPIRIN [Concomitant]
     Dosage: 325 MG, UNK
  13. WELLBUTRIN [Concomitant]
     Dosage: 75 MG, UNK
  14. ALLOPURINOL [Concomitant]
     Dosage: 100 MG, UNK
  15. MORPHINE SULF [Concomitant]
     Dosage: 20 MG, UNK
  16. SENNA [Concomitant]
     Dosage: 15 MG, UNK
  17. FROVA [Concomitant]
     Dosage: 2.5 MG, UNK
  18. POTASSIUM [Concomitant]
     Dosage: UNK UKN, UNK
  19. PROCHLORPERAZ [Concomitant]
     Dosage: 5 MG, UNK
  20. LIDOCAINE [Concomitant]
     Dosage: UNK UKN, UNK
  21. REVLIMID [Concomitant]
     Dosage: 25 MG, UNK

REACTIONS (3)
  - Cataract [Unknown]
  - Dry eye [Unknown]
  - Muscle spasms [Unknown]
